FAERS Safety Report 12517656 (Version 12)
Quarter: 2022Q3

REPORT INFORMATION
  Report Type: Report from Study
  Country: CO (occurrence: CO)
  Receive Date: 20160630
  Receipt Date: 20220630
  Transmission Date: 20221027
  Serious: Yes (Other)
  Sender: FDA-Public Use
  Company Number: PHHY2015CO045179

PATIENT
  Sex: Female
  Weight: 62 kg

DRUGS (15)
  1. TASIGNA [Suspect]
     Active Substance: NILOTINIB
     Indication: Chronic myeloid leukaemia
     Dosage: 200 MG, BID (IN THE MORNING AND AT NIGHT)
     Route: 048
     Dates: start: 2012
  2. TASIGNA [Suspect]
     Active Substance: NILOTINIB
     Dosage: 200 MG, Q12H
     Route: 048
     Dates: start: 20130320
  3. TASIGNA [Suspect]
     Active Substance: NILOTINIB
     Dosage: 300 MG, Q12H
     Route: 048
  4. TASIGNA [Suspect]
     Active Substance: NILOTINIB
     Dosage: 400 MG, Q12H
     Route: 048
  5. TASIGNA [Suspect]
     Active Substance: NILOTINIB
     Dosage: 200 MG, BID (IN THE MORNING AND AT NIGHT)
     Route: 048
  6. TASIGNA [Suspect]
     Active Substance: NILOTINIB
     Dosage: UNK
     Route: 048
  7. LOSARTAN [Suspect]
     Active Substance: LOSARTAN
     Indication: Hypertension
     Dosage: 100 MG, Q12H
     Route: 048
     Dates: start: 2010
  8. LOSARTAN [Suspect]
     Active Substance: LOSARTAN
     Dosage: 50 MG, Q12H
     Route: 048
     Dates: start: 2011
  9. METOPROLOL [Suspect]
     Active Substance: METOPROLOL
     Indication: Hypertension
     Dosage: 50 MG, Q12H
     Route: 048
  10. METOPROLOL [Suspect]
     Active Substance: METOPROLOL
     Dosage: 50 MG, QD
     Route: 048
     Dates: start: 2011
  11. ATORVASTATIN [Concomitant]
     Active Substance: ATORVASTATIN
     Indication: Blood cholesterol abnormal
     Dosage: 40 MG, QD
     Route: 048
  12. ATORVASTATIN [Concomitant]
     Active Substance: ATORVASTATIN
     Indication: Coronary artery disease
     Dosage: 2 DF, QHS (AT NIGHT)
     Route: 065
     Dates: start: 20160901
  13. HYDROCHLOROTHIAZIDE [Concomitant]
     Active Substance: HYDROCHLOROTHIAZIDE
     Indication: Hypertension
     Dosage: 25 MG, QD
     Route: 048
     Dates: start: 2011
  14. HYDROCHLOROTHIAZIDE [Concomitant]
     Active Substance: HYDROCHLOROTHIAZIDE
     Dosage: 25 MG, QD (AT BREAKFAST)
     Route: 048
     Dates: start: 2015
  15. ASPIRIN [Concomitant]
     Active Substance: ASPIRIN
     Indication: Cardiovascular disorder
     Dosage: 100 MG, QD
     Route: 065
     Dates: start: 2015

REACTIONS (37)
  - Cardiac disorder [Unknown]
  - Coronary artery disease [Unknown]
  - Hypertensive crisis [Unknown]
  - Glaucoma [Unknown]
  - Arterial occlusive disease [Unknown]
  - Liver disorder [Unknown]
  - Fungal infection [Unknown]
  - Thirst [Unknown]
  - Aphonia [Unknown]
  - Peripheral swelling [Unknown]
  - Blood triglycerides abnormal [Unknown]
  - Blood cholesterol abnormal [Unknown]
  - Blood thyroid stimulating hormone abnormal [Unknown]
  - Disturbance in social behaviour [Unknown]
  - Cardiac stress test abnormal [Unknown]
  - Psychiatric symptom [Unknown]
  - Localised oedema [Unknown]
  - Mouth ulceration [Unknown]
  - Rash pruritic [Unknown]
  - Pain [Unknown]
  - Nausea [Unknown]
  - Malaise [Unknown]
  - Blood bilirubin increased [Unknown]
  - Chest discomfort [Not Recovered/Not Resolved]
  - Dyspnoea [Unknown]
  - Chest pain [Unknown]
  - Tongue ulceration [Unknown]
  - Decreased appetite [Unknown]
  - Pyrexia [Unknown]
  - Gait disturbance [Unknown]
  - Cytogenetic analysis abnormal [Unknown]
  - Influenza [Unknown]
  - Cough [Unknown]
  - Fatigue [Not Recovered/Not Resolved]
  - Product dose omission issue [Unknown]
  - Product availability issue [Recovered/Resolved]
  - Inappropriate schedule of product administration [Unknown]

NARRATIVE: CASE EVENT DATE: 20130101
